FAERS Safety Report 6263834-7 (Version None)
Quarter: 2009Q3

REPORT INFORMATION
  Report Type: 
  Country: None (occurrence: None)
  Receive Date: 20090701
  Receipt Date: 20090609
  Transmission Date: 20100115
  Serious: Yes (Other)
  Sender: FDA-Public Use
  Company Number: 191633USA

PATIENT
  Sex: Male

DRUGS (3)
  1. LAMOTRIGINE [Suspect]
     Dosage: (100 MG) , ORAL
     Route: 048
  2. PHENYTOIN [Concomitant]
  3. OLMESARTAN MEDOXOMIL [Concomitant]

REACTIONS (3)
  - CONVULSION [None]
  - DRUG LEVEL DECREASED [None]
  - IMPAIRED DRIVING ABILITY [None]
